FAERS Safety Report 20768910 (Version 1)
Quarter: 2022Q2

REPORT INFORMATION
  Report Type: Spontaneous
  Country: US (occurrence: None)
  Receive Date: 20220428
  Receipt Date: 20220428
  Transmission Date: 20220721
  Serious: Yes (Hospitalization)
  Sender: FDA-Public Use
  Company Number: None

PATIENT
  Sex: Female
  Weight: 41.8 kg

DRUGS (1)
  1. ELIQUIS [Suspect]
     Active Substance: APIXABAN
     Dosage: FREQUENCY : TWICE A DAY;?
     Route: 048

REACTIONS (8)
  - Haematochezia [None]
  - Thrombosis [None]
  - Dizziness [None]
  - Dyspnoea [None]
  - Blood pressure decreased [None]
  - Haemoglobin decreased [None]
  - Haematocrit decreased [None]
  - Dizziness [None]

NARRATIVE: CASE EVENT DATE: 20220126
